FAERS Safety Report 25329298 (Version 1)
Quarter: 2025Q2

REPORT INFORMATION
  Report Type: Spontaneous
  Country: DE (occurrence: DE)
  Receive Date: 20250519
  Receipt Date: 20250519
  Transmission Date: 20250717
  Serious: Yes (Other)
  Sender: UCB
  Company Number: DE-UCBSA-2025029011

PATIENT
  Sex: Female

DRUGS (1)
  1. ZILBRYSQ [Suspect]
     Active Substance: ZILUCOPLAN
     Indication: Myasthenia gravis
     Dosage: 0.574
     Route: 058
     Dates: start: 20241106, end: 202504

REACTIONS (2)
  - Myasthenia gravis [Not Recovered/Not Resolved]
  - Product ineffective [Unknown]
